FAERS Safety Report 7920433-6 (Version None)
Quarter: 2011Q4

REPORT INFORMATION
  Report Type: 
  Country: None (occurrence: None)
  Receive Date: 20111117
  Receipt Date: 20111107
  Transmission Date: 20120403
  Serious: Yes (Hospitalization, Other)
  Sender: FDA-Public Use
  Company Number: PHHY2011IT098179

PATIENT

DRUGS (6)
  1. DEPAKENE [Concomitant]
     Dosage: 600 MG, QD
     Route: 048
     Dates: start: 20090315
  2. CLONAZEPAM [Concomitant]
     Dosage: 6 DRP, QD
     Dates: start: 20090315
  3. COUMADIN [Concomitant]
     Dosage: UNK UKN, UNK
     Dates: start: 20060216
  4. LASIX [Concomitant]
     Dosage: 25 MG, QD
     Route: 048
     Dates: start: 20111001
  5. TASIGNA [Suspect]
     Indication: CHRONIC MYELOID LEUKAEMIA
     Dosage: 800 MG, QD
     Route: 048
     Dates: start: 20090320, end: 20111022
  6. TASIGNA [Suspect]
     Dosage: 800 MG, QD
     Route: 048

REACTIONS (4)
  - PLEURAL EFFUSION [None]
  - ATRIAL FIBRILLATION [None]
  - PYREXIA [None]
  - DYSPNOEA AT REST [None]
